FAERS Safety Report 23748728 (Version 1)
Quarter: 2024Q2

REPORT INFORMATION
  Report Type: Spontaneous
  Country: US (occurrence: US)
  Receive Date: 20240416
  Receipt Date: 20240416
  Transmission Date: 20240715
  Serious: No
  Sender: FDA-Public Use
  Company Number: US-AMGEN-USASP2024073282

PATIENT
  Age: 37 Year
  Sex: Female

DRUGS (4)
  1. ADALIMUMAB [Suspect]
     Active Substance: ADALIMUMAB\ISOPROPYL ALCOHOL
     Indication: Granulomatous liver disease
     Dosage: 50 MILLIGRAM, Q2WK
     Route: 065
  2. INFLIXIMAB [Suspect]
     Active Substance: INFLIXIMAB
     Indication: Granulomatous liver disease
     Dosage: 5 MILLIGRAM/KILOGRAM
     Route: 065
  3. METHOTREXATE [Concomitant]
     Active Substance: METHOTREXATE
     Indication: Granulomatous liver disease
     Dosage: 5 MILLIGRAM
     Route: 065
  4. METHOTREXATE [Concomitant]
     Active Substance: METHOTREXATE
     Dosage: 25 MILLIGRAM
     Route: 058

REACTIONS (4)
  - Drug level below therapeutic [Unknown]
  - Drug ineffective for unapproved indication [Unknown]
  - Drug specific antibody present [Unknown]
  - Off label use [Unknown]
